FAERS Safety Report 8913937 (Version 1)
Quarter: 2012Q4

REPORT INFORMATION
  Report Type: 
  Country: GB (occurrence: GB)
  Receive Date: 20121119
  Receipt Date: 20121119
  Transmission Date: 20130627
  Serious: Yes (Life-Threatening, Hospitalization)
  Sender: FDA-Public Use
  Company Number: GB-009507513-1211GBR006531

PATIENT
  Age: 59 Year
  Sex: Male

DRUGS (7)
  1. LISINOPRIL [Suspect]
     Route: 048
  2. FENTANYL [Concomitant]
     Indication: HIATUS HERNIA
     Dosage: 100 Microgram, UNK
  3. FENTANYL [Concomitant]
     Indication: OBESITY
  4. PROPOFOL [Concomitant]
     Indication: HIATUS HERNIA
     Dosage: 180 mg, UNK
  5. PROPOFOL [Concomitant]
     Indication: OBESITY
  6. SUCCINYLCHOLINE CHLORIDE [Concomitant]
     Indication: HIATUS HERNIA
     Dosage: 100 mg, UNK
  7. SUCCINYLCHOLINE CHLORIDE [Concomitant]
     Indication: OBESITY

REACTIONS (1)
  - Anaphylactic reaction [Recovering/Resolving]
